FAERS Safety Report 19950059 (Version 1)
Quarter: 2021Q4

REPORT INFORMATION
  Report Type: Spontaneous
  Country: US (occurrence: US)
  Receive Date: 20211013
  Receipt Date: 20211013
  Transmission Date: 20220303
  Serious: Yes (Other)
  Sender: FDA-Public Use
  Company Number: None

PATIENT
  Age: 50 Year
  Sex: Female
  Weight: 66.8 kg

DRUGS (2)
  1. FOSAPREPITANT (FOSAPREPITANT DIMEGLUMINE) [Suspect]
     Active Substance: FOSAPREPITANT DIMEGLUMINE
     Indication: Prophylaxis of nausea and vomiting
     Dosage: ?          OTHER FREQUENCY:PRECHEMO;
     Route: 042
     Dates: start: 20211013, end: 20211013
  2. NaCl 0.9% 150 mL bag [Concomitant]
     Dates: start: 20211013, end: 20211013

REACTIONS (3)
  - Erythema [None]
  - Heart rate decreased [None]
  - Oxygen saturation decreased [None]

NARRATIVE: CASE EVENT DATE: 20211013
